FAERS Safety Report 23759440 (Version 1)
Quarter: 2024Q2

REPORT INFORMATION
  Report Type: Spontaneous
  Country: US (occurrence: None)
  Receive Date: 20240418
  Receipt Date: 20240418
  Transmission Date: 20240716
  Serious: No
  Sender: FDA-Public Use
  Company Number: US-ROCHE-3358078

PATIENT
  Sex: Male

DRUGS (2)
  1. PIRFENIDONE [Suspect]
     Active Substance: PIRFENIDONE
     Indication: Idiopathic pulmonary fibrosis
     Dosage: 3PILLS, 3 TIMES A DAY
     Route: 048
     Dates: start: 20230323
  2. PEPTO (UNK INGREDIENTS) [Concomitant]

REACTIONS (9)
  - Nausea [Unknown]
  - Muscle spasms [Unknown]
  - Ageusia [Unknown]
  - Blood pressure decreased [Unknown]
  - Heart rate increased [Unknown]
  - Dyspnoea [Unknown]
  - Lung disorder [Unknown]
  - Gastrointestinal disorder [Unknown]
  - Weight increased [Unknown]
